FAERS Safety Report 26077137 (Version 1)
Quarter: 2025Q4

REPORT INFORMATION
  Report Type: Spontaneous
  Country: AU (occurrence: AU)
  Receive Date: 20251121
  Receipt Date: 20251121
  Transmission Date: 20260118
  Serious: Yes (Life-Threatening, Other)
  Sender: MERCK SHARP & DOHME LLC
  Company Number: None

PATIENT
  Age: 50 Year
  Sex: Male
  Weight: 95 kg

DRUGS (12)
  1. SUGAMMADEX SODIUM [Interacting]
     Active Substance: SUGAMMADEX SODIUM
     Indication: Neuromuscular blockade reversal
     Dosage: TIME INTERVAL: TOTAL: DOSE DESCRIPTION : 200MG (2MG/KG) ONCE DAILY?DAILY DOSE : 2 MILLIGRAM/KILOGRAM
     Route: 042
  2. ROCURONIUM BROMIDE [Interacting]
     Active Substance: ROCURONIUM BROMIDE
     Indication: Anaesthesia
     Dosage: DOSE DESCRIPTION : UNK
  3. FENTANYL [Concomitant]
     Active Substance: FENTANYL
  4. PROPOFOL [Concomitant]
     Active Substance: PROPOFOL
  5. SUCCINYLCHOLINE CHLORIDE [Concomitant]
     Active Substance: SUCCINYLCHOLINE CHLORIDE
  6. TAZOCIN [Concomitant]
  7. DEXAMETHASONE [Concomitant]
     Active Substance: DEXAMETHASONE
  8. GRANISETRON [Concomitant]
     Active Substance: GRANISETRON
  9. PARECOXIB [Concomitant]
     Active Substance: PARECOXIB
  10. ALCOHOL\CHLORHEXIDINE GLUCONATE [Concomitant]
     Active Substance: ALCOHOL\CHLORHEXIDINE GLUCONATE
     Route: 061
  11. SEVOFLURANE [Concomitant]
     Active Substance: SEVOFLURANE
  12. BUPIROP EPINEFRINA [Concomitant]

REACTIONS (2)
  - Anaphylactic reaction [Unknown]
  - Drug interaction [Unknown]
